FAERS Safety Report 10233685 (Version 1)
Quarter: 2014Q2

REPORT INFORMATION
  Report Type: Spontaneous
  Country: US (occurrence: US)
  Receive Date: 20140612
  Receipt Date: 20140612
  Transmission Date: 20141212
  Serious: Yes (Hospitalization, Other)
  Sender: FDA-Public Use
  Company Number: US-PFIZER INC-2014159428

PATIENT
  Age: 76 Year
  Sex: Male
  Weight: 84 kg

DRUGS (3)
  1. TIKOSYN [Suspect]
     Indication: HEART RATE ABNORMAL
     Dosage: 250 UG, 2X/DAY
     Route: 048
  2. DIGOXIN [Concomitant]
     Dosage: 1 DF, 1X/DAY
  3. DILTIAZEM [Concomitant]
     Dosage: 180 MG, 1X/DAY

REACTIONS (7)
  - Dyspnoea [Unknown]
  - Atrial fibrillation [Unknown]
  - Haematochezia [Unknown]
  - Haemorrhage [Unknown]
  - Blood pressure fluctuation [Unknown]
  - Palpitations [Unknown]
  - Anorectal disorder [Unknown]
